FAERS Safety Report 4381600-4 (Version None)
Quarter: 2004Q2

REPORT INFORMATION
  Report Type: 
  Country: None (occurrence: None)
  Receive Date: 20040615
  Receipt Date: 20040604
  Transmission Date: 20050107
  Serious: Yes (Other)
  Sender: FDA-Public Use
  Company Number: HQWYE326508JUN04

PATIENT
  Sex: Female

DRUGS (2)
  1. PREMPRO [Suspect]
     Dosage: ORAL
     Route: 048
  2. CALTRATE 600 (CALCIUM CARBONATE) [Concomitant]

REACTIONS (1)
  - MALIGNANT MELANOMA [None]
